FAERS Safety Report 11368146 (Version 1)
Quarter: 2015Q3

REPORT INFORMATION
  Report Type: Spontaneous
  Country: US (occurrence: US)
  Receive Date: 20150811
  Receipt Date: 20150811
  Transmission Date: 20151125
  Serious: No
  Sender: FDA-Public Use
  Company Number: US-ELI_LILLY_AND_COMPANY-US201402004858

PATIENT
  Sex: Male

DRUGS (4)
  1. AMIODARONE [Concomitant]
     Active Substance: AMIODARONE
     Dosage: UNK, UNKNOWN
     Route: 065
  2. LISINOPRIL. [Concomitant]
     Active Substance: LISINOPRIL
     Dosage: UNK, UNKNOWN
  3. AXIRON [Suspect]
     Active Substance: TESTOSTERONE
     Indication: ASTHENIA
     Dosage: 30 MG, QD
     Dates: start: 20140209, end: 20140213
  4. ALPRAZOLAM. [Concomitant]
     Active Substance: ALPRAZOLAM
     Dosage: UNK UNK, UNKNOWN
     Route: 065

REACTIONS (9)
  - Pain in extremity [Unknown]
  - Myalgia [Unknown]
  - Pruritus [Unknown]
  - Insomnia [Unknown]
  - Somnolence [Unknown]
  - Off label use [Unknown]
  - Sleep apnoea syndrome [Unknown]
  - Feeling abnormal [Unknown]
  - Malaise [Unknown]
